FAERS Safety Report 9238175 (Version 6)
Quarter: 2014Q1

REPORT INFORMATION
  Report Type: Report from Study
  Country: JP (occurrence: JP)
  Receive Date: 20130418
  Receipt Date: 20140322
  Transmission Date: 20141002
  Serious: Yes (Hospitalization, Other)
  Sender: FDA-Public Use
  Company Number: PHHY2013JP024173

PATIENT
  Age: 57 Year
  Sex: Male
  Weight: 83 kg

DRUGS (29)
  1. CLOZARIL [Suspect]
     Indication: SCHIZOPHRENIA, PARANOID TYPE
     Dosage: 150 MG
     Route: 048
     Dates: start: 20121127
  2. CLOZARIL [Interacting]
     Dosage: 12.5 MG
     Route: 048
     Dates: start: 20121128
  3. CLOZARIL [Interacting]
     Dosage: 25 MG
     Dates: start: 20121129, end: 20121201
  4. CLOZARIL [Interacting]
     Dosage: 50 MG
     Route: 048
     Dates: start: 20121202
  5. CLOZARIL [Interacting]
     Dosage: 75 MG
     Route: 048
     Dates: start: 20121205, end: 20121206
  6. CLOZARIL [Interacting]
     Dosage: 100 MG
     Route: 048
     Dates: start: 20121207, end: 20121208
  7. CLOZARIL [Interacting]
     Dosage: 125 MG
     Route: 048
     Dates: start: 20121209, end: 20121211
  8. CLOZARIL [Interacting]
     Dosage: 150 MG
     Route: 048
     Dates: start: 20121212, end: 20121218
  9. CLOZARIL [Interacting]
     Dosage: 100 MG
     Route: 048
     Dates: start: 20121219, end: 20130115
  10. CLOZARIL [Interacting]
     Dosage: 75 MG
     Route: 048
     Dates: start: 20130116, end: 20130122
  11. CLOZARIL [Interacting]
     Dosage: 62.5 MG
     Route: 048
     Dates: start: 20130123, end: 20130212
  12. CLOZARIL [Interacting]
     Dosage: 50 MG
     Route: 048
     Dates: start: 20130213, end: 20130219
  13. CLOZARIL [Interacting]
     Dosage: 12.5 MG
     Route: 048
     Dates: start: 20130226
  14. CLOZARIL [Interacting]
     Dosage: 25 MG
     Route: 048
     Dates: start: 20130227
  15. CLOZARIL [Interacting]
     Dosage: 50 MG
     Route: 048
     Dates: start: 20130228, end: 20130319
  16. CLOZARIL [Interacting]
     Dosage: 12.5 MG
     Route: 048
     Dates: start: 20130403, end: 20130403
  17. CLOZARIL [Interacting]
     Dosage: 25 MG
     Route: 048
     Dates: start: 20130404, end: 20130422
  18. LITHIUM CARBONATE [Interacting]
     Dosage: UNK
     Route: 048
  19. SEROQUEL [Concomitant]
     Dosage: 250 MG
     Dates: end: 20121211
  20. SEROQUEL [Concomitant]
     Dosage: 100 MG
  21. MAGMITT [Concomitant]
     Dosage: 660 MG, UNK
     Route: 048
     Dates: start: 20111009
  22. MAGMITT [Concomitant]
     Dosage: 990 MG, UNK
     Route: 048
  23. MAGMITT [Concomitant]
     Dosage: 1320 MG, UNK
     Route: 048
     Dates: end: 20120218
  24. ZYPREXA [Concomitant]
     Dosage: 5 MG, UNK
     Route: 048
     Dates: start: 20130219
  25. ZYPREXA [Concomitant]
     Dosage: 5 MG, UNK
     Route: 048
     Dates: end: 20130225
  26. SERENACE [Concomitant]
     Dosage: UNK
     Dates: start: 20130220, end: 20130224
  27. HALOSTEN [Concomitant]
     Dosage: UNK
     Route: 048
     Dates: start: 20130225, end: 20130225
  28. LIMAS [Concomitant]
     Indication: SCHIZOPHRENIA
     Dosage: 200 MG, QD
     Route: 048
     Dates: start: 20130312, end: 20130318
  29. LIMAS [Concomitant]
     Indication: PROPHYLAXIS

REACTIONS (5)
  - Cholecystitis [Recovered/Resolved]
  - Pancreatitis acute [Recovering/Resolving]
  - Hepatic function abnormal [Recovering/Resolving]
  - Drug interaction [Unknown]
  - Blood creatinine increased [Unknown]
